FAERS Safety Report 10191154 (Version 1)
Quarter: 2014Q2

REPORT INFORMATION
  Report Type: Spontaneous
  Country: GB (occurrence: GB)
  Receive Date: 20140523
  Receipt Date: 20140523
  Transmission Date: 20141212
  Serious: Yes (Life-Threatening, Hospitalization)
  Sender: FDA-Public Use
  Company Number: GB-TEVA-481434ISR

PATIENT
  Age: 86 Year
  Sex: Male

DRUGS (9)
  1. WARFARIN [Suspect]
     Indication: ATRIAL FIBRILLATION
     Route: 048
     Dates: start: 20140414, end: 20140430
  2. GAVISCON ADVANCE [Concomitant]
     Route: 048
  3. RAMIPRIL [Concomitant]
     Route: 048
  4. LANSOPRAZOLE [Concomitant]
     Dosage: IN THE MORNING.
     Route: 048
  5. ZOMORPH [Concomitant]
     Route: 048
  6. ACETYLCYSTEINE [Concomitant]
     Indication: PULMONARY FIBROSIS
     Route: 048
  7. DOMPERIDONE [Concomitant]
     Dosage: TO BE REVIEWED.
     Route: 048
  8. LACTULOSE [Concomitant]
     Route: 048
  9. IPRATROPIUM BROMIDE [Concomitant]
     Dosage: 21MCG/ SPRAY, TWO DOSES EACH NOSTRIL
     Route: 045

REACTIONS (3)
  - Pulmonary fibrosis [Unknown]
  - Dyspnoea [Unknown]
  - Condition aggravated [Unknown]
